FAERS Safety Report 8248045-8 (Version None)
Quarter: 2012Q1

REPORT INFORMATION
  Report Type: 
  Country: None (occurrence: None)
  Receive Date: 20120330
  Receipt Date: 20120322
  Transmission Date: 20120608
  Serious: Yes (Hospitalization)
  Sender: FDA-Public Use
  Company Number: JP-ROCHE-1046377

PATIENT
  Sex: Male
  Weight: 19 kg

DRUGS (20)
  1. PREDNISOLONE [Concomitant]
     Route: 048
     Dates: start: 20100527, end: 20100609
  2. PREDNISOLONE [Concomitant]
     Route: 048
     Dates: start: 20100803, end: 20100927
  3. ACTEMRA [Suspect]
     Route: 041
     Dates: start: 20100914, end: 20110524
  4. PREDNISOLONE [Concomitant]
     Route: 048
     Dates: start: 20100706, end: 20100802
  5. PROGRAF [Concomitant]
     Route: 048
     Dates: start: 20110703, end: 20110902
  6. TACROLIMUS [Concomitant]
     Indication: JUVENILE ARTHRITIS
     Dosage: DOSAGE IS UNCERTAIN.
     Route: 065
  7. PREDNISOLONE [Concomitant]
     Indication: JUVENILE ARTHRITIS
     Route: 048
     Dates: start: 20100521, end: 20100526
  8. PREDNISOLONE [Concomitant]
     Route: 048
     Dates: start: 20110416, end: 20110719
  9. SANDIMMUNE [Concomitant]
     Route: 042
     Dates: start: 20100415, end: 20100428
  10. ACTEMRA [Suspect]
     Route: 041
     Dates: start: 20110525, end: 20110824
  11. PREDNISOLONE [Concomitant]
     Route: 048
     Dates: start: 20100610, end: 20100705
  12. DECADRON [Concomitant]
     Dosage: 1.5MGXONCE/DAY 2.0MGXONCE
     Route: 048
     Dates: start: 20100507, end: 20100520
  13. NEORAL [Concomitant]
     Route: 048
     Dates: start: 20100429, end: 20110702
  14. METHOTREXATE [Concomitant]
     Route: 048
     Dates: start: 20100414, end: 20110627
  15. DECADRON [Concomitant]
     Dosage: 2MGXONCE/DAY 2.5MGXONCE
     Route: 048
     Dates: start: 20100423, end: 20100506
  16. ALENDRONATE SODIUM [Concomitant]
     Route: 048
     Dates: start: 20100521, end: 20110902
  17. ACTEMRA [Suspect]
     Indication: JUVENILE ARTHRITIS
     Route: 041
     Dates: start: 20100421, end: 20100913
  18. PREDNISOLONE [Concomitant]
     Route: 048
     Dates: start: 20110720, end: 20110902
  19. PREDNISOLONE [Concomitant]
     Route: 048
     Dates: start: 20100928, end: 20110415
  20. DECADRON [Concomitant]
     Route: 042
     Dates: start: 20100417, end: 20100422

REACTIONS (1)
  - BEHCET'S SYNDROME [None]
